FAERS Safety Report 6997341-0 (Version None)
Quarter: 2010Q3

REPORT INFORMATION
  Report Type: 
  Country: None (occurrence: None)
  Receive Date: 20100918
  Receipt Date: 20090929
  Transmission Date: 20110219
  Serious: No
  Sender: FDA-Public Use
  Company Number: US-WYE-H11339409

PATIENT
  Age: 65 Year
  Sex: Female
  Weight: 86.26 kg

DRUGS (4)
  1. PRISTIQ [Suspect]
     Indication: MIGRAINE
     Dosage: 50 MG DAILY PRN
     Route: 048
     Dates: start: 20090908
  2. SYNTHROID [Concomitant]
  3. MACROBID [Concomitant]
  4. MIACALCIN [Concomitant]

REACTIONS (4)
  - BRUXISM [None]
  - DIZZINESS [None]
  - HYPERHIDROSIS [None]
  - NAUSEA [None]
